FAERS Safety Report 5719206-4 (Version None)
Quarter: 2008Q2

REPORT INFORMATION
  Report Type: 
  Country: None (occurrence: None)
  Receive Date: 20080428
  Receipt Date: 20080417
  Transmission Date: 20081010
  Serious: Yes (Hospitalization, Other)
  Sender: FDA-Public Use
  Company Number: GB-ELI_LILLY_AND_COMPANY-GB200804005050

PATIENT
  Age: 71 Year
  Sex: Male

DRUGS (5)
  1. ZYPREXA [Suspect]
     Indication: MANIA
     Dosage: 10 MG, UNK
     Dates: start: 20071101
  2. ZYPREXA [Suspect]
     Dosage: 15 MG, UNK
  3. PREDNISOLONE [Concomitant]
     Indication: JUVENILE ARTHRITIS
     Dosage: 70 MG, UNK
  4. OMEPRAZOLE [Concomitant]
     Indication: JUVENILE ARTHRITIS
  5. LEVOTHYROXINE SODIUM [Concomitant]
     Indication: JUVENILE ARTHRITIS

REACTIONS (6)
  - INTESTINAL GANGRENE [None]
  - JUVENILE ARTHRITIS [None]
  - MANIA [None]
  - NEUTROPENIA [None]
  - RECTAL HAEMORRHAGE [None]
  - RENAL FAILURE ACUTE [None]
